FAERS Safety Report 14546805 (Version 2)
Quarter: 2018Q1

REPORT INFORMATION
  Report Type: Spontaneous
  Country: US (occurrence: US)
  Receive Date: 20180219
  Receipt Date: 20180316
  Transmission Date: 20180509
  Serious: Yes (Life-Threatening, Hospitalization)
  Sender: FDA-Public Use
  Company Number: US-PFIZER INC-2018068403

PATIENT
  Age: 68 Year
  Sex: Female
  Weight: 115 kg

DRUGS (4)
  1. ANCEF [Concomitant]
     Active Substance: CEFAZOLIN SODIUM
     Dosage: 1 DF, UNK
     Dates: start: 20180213, end: 20180213
  2. CEFTRIAXONE SODIUM. [Suspect]
     Active Substance: CEFTRIAXONE SODIUM
     Indication: URINARY TRACT INFECTION
     Dosage: 1 G, UNK
     Route: 040
     Dates: start: 20180213
  3. CEFTRIAXONE SODIUM. [Suspect]
     Active Substance: CEFTRIAXONE SODIUM
     Dosage: 1 G, UNK
     Dates: start: 20180213
  4. ANCEF [Concomitant]
     Active Substance: CEFAZOLIN SODIUM
     Indication: PROPHYLAXIS
     Dosage: 3 DF, UNK
     Route: 042
     Dates: start: 20180212, end: 20180212

REACTIONS (5)
  - Intentional product misuse [Recovered/Resolved]
  - Dyspnoea [Recovered/Resolved]
  - Product odour abnormal [Unknown]
  - Poor quality drug administered [Unknown]
  - Mental status changes [Recovered/Resolved]

NARRATIVE: CASE EVENT DATE: 20180213
